FAERS Safety Report 8303620-7 (Version None)
Quarter: 2012Q2

REPORT INFORMATION
  Report Type: 
  Country: None (occurrence: None)
  Receive Date: 20120418
  Receipt Date: 20120410
  Transmission Date: 20120825
  Serious: Yes (Other)
  Sender: FDA-Public Use
  Company Number: 2011SP054753

PATIENT
  Age: 42 Year
  Sex: Female
  Weight: 63 kg

DRUGS (2)
  1. DESOGESTREL AND ETHINYL ESTRADIOL [Suspect]
     Indication: CONTRACEPTION
     Dosage: QD;PO, QD;PO
     Route: 048
     Dates: start: 19910101, end: 19920101
  2. DESOGESTREL AND ETHINYL ESTRADIOL [Suspect]
     Indication: CONTRACEPTION
     Dosage: QD;PO, QD;PO
     Route: 048
     Dates: start: 19990101, end: 20120201

REACTIONS (6)
  - MENSTRUATION DELAYED [None]
  - ARTHRITIS [None]
  - PREGNANCY [None]
  - MATERNAL EXPOSURE BEFORE PREGNANCY [None]
  - MEMORY IMPAIRMENT [None]
  - INCORRECT DRUG ADMINISTRATION DURATION [None]
